FAERS Safety Report 12535898 (Version 1)
Quarter: 2016Q3

REPORT INFORMATION
  Report Type: Spontaneous
  Country: US (occurrence: None)
  Receive Date: 20160706
  Receipt Date: 20160706
  Transmission Date: 20161109
  Serious: Yes (Other)
  Sender: FDA-Public Use
  Company Number: None

PATIENT
  Age: 64 Year
  Sex: Female
  Weight: 77.11 kg

DRUGS (16)
  1. RESTASIS [Concomitant]
     Active Substance: CYCLOSPORINE
  2. NOVOLOG [Concomitant]
     Active Substance: INSULIN ASPART
  3. LEVEMIR [Concomitant]
     Active Substance: INSULIN DETEMIR
  4. CARVEDILOL. [Concomitant]
     Active Substance: CARVEDILOL
  5. FLONASE [Concomitant]
     Active Substance: FLUTICASONE PROPIONATE
  6. COQ10 [Concomitant]
     Active Substance: UBIDECARENONE
  7. EYE WETTING DROPS [Concomitant]
  8. CRESTOR [Concomitant]
     Active Substance: ROSUVASTATIN CALCIUM
  9. VITAMIN D [Concomitant]
     Active Substance: CHOLECALCIFEROL
  10. METHANIMINE (HIPPEO) [Concomitant]
  11. OZURDEX [Suspect]
     Active Substance: DEXAMETHASONE
     Indication: MACULAR OEDEMA
     Route: 031
  12. VIGAMOX [Concomitant]
     Active Substance: MOXIFLOXACIN HYDROCHLORIDE
  13. VESICARE DIALYTE KIDNEY VITAMINS [Concomitant]
  14. SUPRAPUBIC [Concomitant]
  15. AMYLODIPINE [Concomitant]
  16. OMNEPRAZOLE [Concomitant]

REACTIONS (3)
  - Visual acuity reduced [None]
  - Drug effect decreased [None]
  - Glaucoma [None]

NARRATIVE: CASE EVENT DATE: 20160506
